FAERS Safety Report 9487251 (Version 1)
Quarter: 2013Q3

REPORT INFORMATION
  Report Type: Spontaneous
  Country: US (occurrence: US)
  Receive Date: 20130829
  Receipt Date: 20130829
  Transmission Date: 20140515
  Serious: Yes (Hospitalization)
  Sender: FDA-Public Use
  Company Number: US-ELI_LILLY_AND_COMPANY-US201308007405

PATIENT
  Age: 49 Year
  Sex: Female
  Weight: 56.24 kg

DRUGS (2)
  1. HUMAN INSULIN (RDNA ORIGIN) [Suspect]
     Route: 058
  2. HUMALOG LISPRO [Suspect]
     Route: 058

REACTIONS (5)
  - Road traffic accident [Unknown]
  - Blood glucose decreased [Recovered/Resolved]
  - Blood glucose increased [Unknown]
  - Blood glucose decreased [Recovered/Resolved]
  - Wrong technique in drug usage process [Unknown]
